FAERS Safety Report 15760461 (Version 1)
Quarter: 2018Q4

REPORT INFORMATION
  Report Type: Spontaneous
  Country: PE (occurrence: PE)
  Receive Date: 20181226
  Receipt Date: 20181226
  Transmission Date: 20190205
  Serious: Yes (Other)
  Sender: FDA-Public Use
  Company Number: PE-MYLANLABS-2018M1093808

PATIENT
  Age: 27 Year
  Sex: Male

DRUGS (2)
  1. ISOTRETINOIN. [Suspect]
     Active Substance: ISOTRETINOIN
     Indication: CYST
     Dosage: 0.3 MILLIGRAM/KILOGRAM, QD
     Route: 065
  2. ISOTRETINOIN. [Suspect]
     Active Substance: ISOTRETINOIN
     Dosage: 0.1 MILLIGRAM/KILOGRAM, QD
     Route: 065

REACTIONS (2)
  - Keloid scar [Unknown]
  - Acne fulminans [Recovered/Resolved]
